FAERS Safety Report 8259618-0 (Version None)
Quarter: 2012Q2

REPORT INFORMATION
  Report Type: 
  Country: None (occurrence: None)
  Receive Date: 20120404
  Receipt Date: 20120330
  Transmission Date: 20120825
  Serious: Yes (Hospitalization)
  Sender: FDA-Public Use
  Company Number: PHHY2012JP028206

PATIENT
  Sex: Male
  Weight: 80 kg

DRUGS (2)
  1. AFINITOR [Suspect]
     Dosage: 10 MG, DAILY
     Route: 048
     Dates: start: 20110223, end: 20110325
  2. AFINITOR [Suspect]
     Indication: METASTATIC RENAL CELL CARCINOMA
     Dosage: 5 MG, DAILY
     Route: 048
     Dates: start: 20110216, end: 20110223

REACTIONS (4)
  - INTERSTITIAL LUNG DISEASE [None]
  - PYREXIA [None]
  - FEMUR FRACTURE [None]
  - C-REACTIVE PROTEIN INCREASED [None]
